FAERS Safety Report 15007761 (Version 2)
Quarter: 2018Q2

REPORT INFORMATION
  Report Type: Report from Study
  Country: GB (occurrence: GB)
  Receive Date: 20180613
  Receipt Date: 20180618
  Transmission Date: 20180711
  Serious: Yes (Other)
  Sender: FDA-Public Use
  Company Number: PHHY2018GB018220

PATIENT
  Age: 37 Year
  Sex: Female

DRUGS (1)
  1. COSENTYX [Suspect]
     Active Substance: SECUKINUMAB
     Indication: PSORIATIC ARTHROPATHY
     Dosage: 300 MG, QW
     Route: 058
     Dates: start: 20180529

REACTIONS (10)
  - Anaemia [Unknown]
  - Lethargy [Recovered/Resolved]
  - Pyrexia [Unknown]
  - Asthenia [Unknown]
  - Chills [Unknown]
  - Pain [Unknown]
  - Coeliac disease [Unknown]
  - Skin mass [Recovered/Resolved]
  - Fatigue [Recovered/Resolved]
  - Viral infection [Unknown]

NARRATIVE: CASE EVENT DATE: 20180605
